FAERS Safety Report 5586193-1 (Version None)
Quarter: 2008Q1

REPORT INFORMATION
  Report Type: 
  Country: None (occurrence: None)
  Receive Date: 20080107
  Receipt Date: 20071226
  Transmission Date: 20080703
  Serious: Yes (Other)
  Sender: FDA-Public Use
  Company Number: 2007338091

PATIENT
  Age: 11 Year
  Sex: Male
  Weight: 34.9 kg

DRUGS (3)
  1. BENADRYL [Suspect]
     Indication: HYPERSENSITIVITY
     Dosage: 1/2 TEASPOON TO 2 TEASPONS, ORAL
     Route: 048
     Dates: start: 20071130, end: 20071217
  2. ZYRTEC [Concomitant]
  3. PREVACID [Concomitant]

REACTIONS (1)
  - ANAPHYLACTIC REACTION [None]
